FAERS Safety Report 7985165-7 (Version None)
Quarter: 2011Q4

REPORT INFORMATION
  Report Type: 
  Country: None (occurrence: None)
  Receive Date: 20111216
  Receipt Date: 20111202
  Transmission Date: 20120403
  Serious: Yes (Other)
  Sender: FDA-Public Use
  Company Number: PHHY2011BR097694

PATIENT
  Sex: Female

DRUGS (1)
  1. SANDOSTATIN LAR [Suspect]
     Indication: PITUITARY TUMOUR
     Dosage: 1 DF, QMO
     Dates: start: 20110301

REACTIONS (5)
  - HYPOACUSIS [None]
  - AMENORRHOEA [None]
  - HORMONE LEVEL ABNORMAL [None]
  - HYPOSMIA [None]
  - DIABETES INSIPIDUS [None]
